FAERS Safety Report 9632909 (Version 2)
Quarter: 2013Q4

REPORT INFORMATION
  Report Type: Report from Study
  Country: US (occurrence: US)
  Receive Date: 20131018
  Receipt Date: 20131018
  Transmission Date: 20140711
  Serious: Yes (Other)
  Sender: FDA-Public Use
  Company Number: US-ABBVIE-13P-163-1133002-00

PATIENT
  Age: 29 Year
  Sex: Female

DRUGS (7)
  1. HUMIRA [Suspect]
     Indication: CROHN^S DISEASE
     Dosage: 160MG
     Dates: start: 20130612, end: 20130612
  2. HUMIRA [Suspect]
     Dosage: 80MG
     Dates: start: 20130626, end: 20130626
  3. HUMIRA [Suspect]
     Dates: start: 20130710, end: 20130710
  4. CELEXA [Concomitant]
     Indication: DEPRESSION
  5. CELEXA [Concomitant]
  6. TYLENOL [Concomitant]
     Indication: PROCEDURAL PAIN
  7. TYLENOL [Concomitant]
     Indication: ARTHRALGIA

REACTIONS (11)
  - Pelvic pouch procedure [Unknown]
  - Pelvic pouch procedure [Not Recovered/Not Resolved]
  - Drug effect incomplete [Unknown]
  - Injection site pain [Not Recovered/Not Resolved]
  - Injection site swelling [Recovered/Resolved]
  - Malnutrition [Not Recovered/Not Resolved]
  - Dehydration [Not Recovered/Not Resolved]
  - Weight decreased [Not Recovered/Not Resolved]
  - Depression [Not Recovered/Not Resolved]
  - Colitis [Unknown]
  - Tooth infection [Unknown]
